FAERS Safety Report 6767701-1 (Version None)
Quarter: 2010Q2

REPORT INFORMATION
  Report Type: 
  Country: None (occurrence: None)
  Receive Date: 20100614
  Receipt Date: 20100607
  Transmission Date: 20101027
  Serious: Yes (Other)
  Sender: FDA-Public Use
  Company Number: DE-B.I. PHARMACEUTICALS,INC./RIDGEFIELD-2010-DE-02709DE

PATIENT
  Age: 80 Year
  Sex: Male

DRUGS (3)
  1. MICARDIS HCT [Suspect]
     Dosage: 80 MG TELMISARTAN + 12.5 MG HYDROCHLOROTHIAZIDE
  2. MICARDIS [Suspect]
     Indication: HYPERTENSION
     Dosage: 80 MG
  3. TORSEMIDE [Concomitant]
     Indication: HYPERTENSION

REACTIONS (4)
  - DANDRUFF [None]
  - PRURITUS [None]
  - PRURITUS GENERALISED [None]
  - SYSTEMIC LUPUS ERYTHEMATOSUS [None]
